FAERS Safety Report 21301451 (Version 2)
Quarter: 2022Q3

REPORT INFORMATION
  Report Type: Spontaneous
  Country: JP (occurrence: JP)
  Receive Date: 20220907
  Receipt Date: 20220912
  Transmission Date: 20221027
  Serious: Yes (Death)
  Sender: FDA-Public Use
  Company Number: JP-MALLINCKRODT-T202204753

PATIENT

DRUGS (1)
  1. NITRIC OXIDE [Suspect]
     Active Substance: NITRIC OXIDE
     Indication: Pulmonary hypertension
     Dosage: UNK (INHALATION)
     Route: 055
     Dates: start: 20220730, end: 20220828

REACTIONS (1)
  - Pulmonary hypertension [Fatal]

NARRATIVE: CASE EVENT DATE: 20220828
